FAERS Safety Report 9106554 (Version 1)
Quarter: 2013Q1

REPORT INFORMATION
  Report Type: Report from Study
  Country: ES (occurrence: ES)
  Receive Date: 20130221
  Receipt Date: 20130221
  Transmission Date: 20140127
  Serious: Yes (Other)
  Sender: FDA-Public Use
  Company Number: ES-JNJFOC-20130208530

PATIENT
  Age: 56 Year
  Sex: Female

DRUGS (3)
  1. INTELENCE [Suspect]
     Indication: HIV INFECTION
     Route: 048
  2. ABACAVIR [Concomitant]
     Indication: HIV INFECTION
  3. 3TC [Concomitant]
     Indication: HIV INFECTION

REACTIONS (1)
  - Toxicity to various agents [Unknown]
